FAERS Safety Report 5118940-7 (Version None)
Quarter: 2006Q3

REPORT INFORMATION
  Report Type: 
  Country: None (occurrence: None)
  Receive Date: 20060927
  Receipt Date: 20060914
  Transmission Date: 20061208
  Serious: Yes (Other)
  Sender: FDA-Public Use
  Company Number: 3157

PATIENT
  Age: 58 Year
  Sex: Female

DRUGS (1)
  1. METHIMAZOLE [Suspect]
     Dosage: METHIMAZOLE 8 TABLETS
     Dates: start: 20060906

REACTIONS (1)
  - DRUG HYPERSENSITIVITY [None]
